FAERS Safety Report 12491710 (Version 2)
Quarter: 2016Q3

REPORT INFORMATION
  Report Type: Spontaneous
  Country: US (occurrence: US)
  Receive Date: 20160623
  Receipt Date: 20160823
  Transmission Date: 20161109
  Serious: No
  Sender: FDA-Public Use
  Company Number: US-PFIZER INC-2016180008

PATIENT
  Age: 64 Year
  Sex: Female

DRUGS (4)
  1. VFEND [Suspect]
     Active Substance: VORICONAZOLE
     Dosage: 250 MG, 2X/DAY
     Dates: start: 20160329
  2. VFEND [Suspect]
     Active Substance: VORICONAZOLE
     Indication: BRONCHIECTASIS
     Dosage: 250 MG, 2X/DAY (200 MG TABLET IN ADDITION TO 50 MG TABLET)
     Route: 048
     Dates: start: 20160324
  3. VFEND [Suspect]
     Active Substance: VORICONAZOLE
     Indication: ASPERGILLUS INFECTION
     Dosage: 200 MG, 2X/DAY
     Dates: start: 20160218, end: 20160601
  4. VFEND [Suspect]
     Active Substance: VORICONAZOLE
     Dosage: 300 MG, 2X/DAY
     Dates: start: 20160424, end: 20160601

REACTIONS (6)
  - Nausea [Not Recovered/Not Resolved]
  - Diarrhoea [Unknown]
  - Drug level decreased [Unknown]
  - Anaemia [Not Recovered/Not Resolved]
  - Blood iron decreased [Unknown]
  - Weight decreased [Recovered/Resolved]

NARRATIVE: CASE EVENT DATE: 20160218
